FAERS Safety Report 18715241 (Version 1)
Quarter: 2021Q1

REPORT INFORMATION
  Report Type: Spontaneous
  Country: US (occurrence: US)
  Receive Date: 20210107
  Receipt Date: 20210107
  Transmission Date: 20210419
  Serious: Yes (Hospitalization)
  Sender: FDA-Public Use
  Company Number: US-ROCHE-2743971

PATIENT
  Age: 86 Year
  Sex: Male

DRUGS (9)
  1. ALLOPURINOL. [Concomitant]
     Active Substance: ALLOPURINOL
  2. BENZONATATE. [Concomitant]
     Active Substance: BENZONATATE
  3. LORAZEPAM. [Concomitant]
     Active Substance: LORAZEPAM
  4. PREDNISONE. [Concomitant]
     Active Substance: PREDNISONE
  5. ESBRIET [Suspect]
     Active Substance: PIRFENIDONE
     Indication: PULMONARY FIBROSIS
     Dosage: 3 CAPS 3 TIMES A DAY
     Route: 048
     Dates: start: 20200605
  6. FENOFIBRATE. [Concomitant]
     Active Substance: FENOFIBRATE
  7. SIMVASTATIN. [Concomitant]
     Active Substance: SIMVASTATIN
  8. LEVEMIR [Concomitant]
     Active Substance: INSULIN DETEMIR
  9. OMEPRAZOLE. [Concomitant]
     Active Substance: OMEPRAZOLE

REACTIONS (1)
  - Fibrosis [Unknown]

NARRATIVE: CASE EVENT DATE: 20201228
